FAERS Safety Report 20363235 (Version 6)
Quarter: 2022Q1

REPORT INFORMATION
  Report Type: Report from Study
  Country: DE (occurrence: DE)
  Receive Date: 20220121
  Receipt Date: 20220308
  Transmission Date: 20220423
  Serious: Yes (Life-Threatening, Hospitalization, Other)
  Sender: FDA-Public Use
  Company Number: DE-BRISTOL-MYERS SQUIBB COMPANY-BMS-2022-006492

PATIENT
  Age: 63 Year
  Sex: Male

DRUGS (7)
  1. NIVOLUMAB [Suspect]
     Active Substance: NIVOLUMAB
     Indication: Metastatic malignant melanoma
     Dosage: 145 MG, 4 CYCLES
     Route: 042
     Dates: start: 20191122, end: 20200127
  2. NIVOLUMAB [Suspect]
     Active Substance: NIVOLUMAB
     Dosage: 240 MILLIGRAM, Q2WK (34 CYCLES FLAT DOSE)
     Route: 042
     Dates: start: 20200404
  3. NIVOLUMAB [Suspect]
     Active Substance: NIVOLUMAB
     Dosage: WEIGHT-RELATED
     Route: 065
     Dates: start: 20211227
  4. IPILIMUMAB [Suspect]
     Active Substance: IPILIMUMAB
     Indication: Metastatic malignant melanoma
     Dosage: 435 MILLIGRAM, Q3WK (4 CYCLES)
     Route: 042
     Dates: start: 20191122, end: 20200127
  5. IPILIMUMAB [Suspect]
     Active Substance: IPILIMUMAB
     Dosage: WEIGHT-RELATED
     Route: 065
     Dates: start: 20211227
  6. DEXAMETHASONE [Concomitant]
     Active Substance: DEXAMETHASONE
     Indication: Product used for unknown indication
     Route: 065
  7. BUDESONIDE [Concomitant]
     Active Substance: BUDESONIDE
     Indication: Product used for unknown indication
     Route: 065

REACTIONS (9)
  - Pancreatitis [Unknown]
  - Biliary fistula [Unknown]
  - Malignant neoplasm progression [Recovered/Resolved with Sequelae]
  - Anaemia [Not Recovered/Not Resolved]
  - Diarrhoea [Recovered/Resolved]
  - Condition aggravated [Not Recovered/Not Resolved]
  - Fatigue [Unknown]
  - Hypotension [Unknown]
  - Rheumatic disorder [Not Recovered/Not Resolved]

NARRATIVE: CASE EVENT DATE: 20201023
